FAERS Safety Report 13499009 (Version 2)
Quarter: 2017Q2

REPORT INFORMATION
  Report Type: Spontaneous
  Country: GB (occurrence: GB)
  Receive Date: 20170501
  Receipt Date: 20170516
  Transmission Date: 20170830
  Serious: Yes (Death, Other)
  Sender: FDA-Public Use
  Company Number: GB-009507513-1704GBR013006

PATIENT
  Sex: Male

DRUGS (1)
  1. KEYTRUDA [Suspect]
     Active Substance: PEMBROLIZUMAB
     Indication: NON-SMALL CELL LUNG CANCER
     Dosage: 2 MG/KG, ONCE
     Route: 042
     Dates: start: 20170407, end: 20170407

REACTIONS (2)
  - Haemoptysis [Unknown]
  - Death [Fatal]

NARRATIVE: CASE EVENT DATE: 20170421
